FAERS Safety Report 16386545 (Version 1)
Quarter: 2019Q2

REPORT INFORMATION
  Report Type: Report from Study
  Country: None (occurrence: DE)
  Receive Date: 20190604
  Receipt Date: 20190604
  Transmission Date: 20190711
  Serious: Yes (Life-Threatening, Hospitalization)
  Sender: FDA-Public Use
  Company Number: DE-ABBVIE-19K-062-2805849-00

PATIENT
  Sex: Female

DRUGS (4)
  1. HUMIRA [Suspect]
     Active Substance: ADALIMUMAB
     Route: 058
     Dates: end: 2016
  2. HUMIRA [Suspect]
     Active Substance: ADALIMUMAB
     Route: 058
     Dates: end: 201807
  3. HUMIRA [Suspect]
     Active Substance: ADALIMUMAB
     Indication: CROHN^S DISEASE
     Route: 058
     Dates: start: 20130501, end: 2015
  4. BENEPALI [Suspect]
     Active Substance: ETANERCEPT
     Indication: PRODUCT USED FOR UNKNOWN INDICATION
     Route: 065
     Dates: start: 201902

REACTIONS (10)
  - Stoma complication [Recovered/Resolved]
  - Stoma site hypergranulation [Recovered/Resolved]
  - Stoma site ulcer [Recovered/Resolved]
  - Cough [Not Recovered/Not Resolved]
  - Stoma complication [Recovered/Resolved]
  - Knee operation [Recovered/Resolved]
  - Unevaluable event [Not Recovered/Not Resolved]
  - Anxiety [Unknown]
  - Post procedural complication [Unknown]
  - Stoma site rash [Recovering/Resolving]

NARRATIVE: CASE EVENT DATE: 2015
